FAERS Safety Report 25475554 (Version 1)
Quarter: 2025Q2

REPORT INFORMATION
  Report Type: Spontaneous
  Country: JP (occurrence: JP)
  Receive Date: 20250624
  Receipt Date: 20250624
  Transmission Date: 20250717
  Serious: Yes (Hospitalization)
  Sender: Unknown Manufacturer
  Company Number: JP-MTPC-MTPC2025-0011340

PATIENT
  Age: 61 Year
  Sex: Male

DRUGS (2)
  1. EDARAVONE [Suspect]
     Active Substance: EDARAVONE
     Route: 048
  2. EDARAVONE [Suspect]
     Active Substance: EDARAVONE
     Route: 048

REACTIONS (3)
  - Respiratory disorder [Unknown]
  - Tracheostomy [Unknown]
  - Mechanical ventilation [Unknown]
